FAERS Safety Report 7672107-7 (Version None)
Quarter: 2011Q3

REPORT INFORMATION
  Report Type: 
  Country: None (occurrence: None)
  Receive Date: 20110809
  Receipt Date: 20110802
  Transmission Date: 20111222
  Serious: Yes (Hospitalization, Other)
  Sender: FDA-Public Use
  Company Number: PHHO2010FR15099

PATIENT
  Sex: Male
  Weight: 88 kg

DRUGS (6)
  1. PREDNISONE [Suspect]
     Indication: RENAL TRANSPLANT
     Dosage: 70 MG, UNK
     Route: 048
     Dates: start: 20100429
  2. AMLODIPINE BESYLATE [Concomitant]
  3. NEORAL [Suspect]
     Indication: RENAL TRANSPLANT
     Dosage: 550 MG, UNK
     Route: 048
     Dates: start: 20100428, end: 20100908
  4. CELLCEPT [Suspect]
     Indication: RENAL TRANSPLANT
     Dosage: 3 G, UNK
     Route: 048
     Dates: start: 20100428
  5. BACTRIM DS [Concomitant]
  6. LASIX [Concomitant]

REACTIONS (7)
  - RENAL TUBULAR DISORDER [None]
  - COMPLEX REGIONAL PAIN SYNDROME [None]
  - RENAL IMPAIRMENT [None]
  - DRUG LEVEL INCREASED [None]
  - DRUG INTOLERANCE [None]
  - KIDNEY TRANSPLANT REJECTION [None]
  - PAIN IN EXTREMITY [None]
